FAERS Safety Report 10932614 (Version 2)
Quarter: 2015Q2

REPORT INFORMATION
  Report Type: Spontaneous
  Country: US (occurrence: None)
  Receive Date: 20150318
  Receipt Date: 20150406
  Transmission Date: 20150821
  Serious: Yes (Hospitalization, Disabling, Other)
  Sender: FDA-Public Use
  Company Number: DEP_02558_2015

PATIENT
  Age: 72 Year
  Sex: Female
  Weight: 78.47 kg

DRUGS (12)
  1. GRALISE [Suspect]
     Active Substance: GABAPENTIN
     Indication: PAIN
     Dosage: SAMPLE PACK, TITRATED UP TO 900 MG
     Route: 048
     Dates: start: 20150210, end: 20150214
  2. GRALISE [Suspect]
     Active Substance: GABAPENTIN
     Indication: OFF LABEL USE
     Dosage: SAMPLE PACK, TITRATED UP TO 900 MG
     Route: 048
     Dates: start: 20150210, end: 20150214
  3. XANAX [Concomitant]
     Active Substance: ALPRAZOLAM
  4. CALCITONIN-SALMON [Concomitant]
     Active Substance: CALCITONIN SALMON
  5. OMEPRAZOLE. [Concomitant]
     Active Substance: OMEPRAZOLE
  6. BABY ASPIRIN [Concomitant]
     Active Substance: ASPIRIN
  7. GRALISE [Suspect]
     Active Substance: GABAPENTIN
     Indication: PRURITUS
     Dosage: SAMPLE PACK, TITRATED UP TO 900 MG
     Route: 048
     Dates: start: 20150210, end: 20150214
  8. OXYCODONE [Concomitant]
     Active Substance: OXYCODONE
  9. LISINOPRIL. [Concomitant]
     Active Substance: LISINOPRIL
  10. FENTANYL. [Concomitant]
     Active Substance: FENTANYL
  11. TRAZODONE [Concomitant]
     Active Substance: TRAZODONE HYDROCHLORIDE
  12. GRALISE [Suspect]
     Active Substance: GABAPENTIN
     Indication: HERPES ZOSTER
     Dosage: SAMPLE PACK, TITRATED UP TO 900 MG
     Route: 048
     Dates: start: 20150210, end: 20150214

REACTIONS (33)
  - Therapy cessation [None]
  - Haematemesis [None]
  - Dysuria [None]
  - Urinary tract infection [None]
  - Feeding disorder [None]
  - Diarrhoea [None]
  - Fluid intake reduced [None]
  - Feeling abnormal [None]
  - Muscle spasms [None]
  - Inappropriate schedule of drug administration [None]
  - Drug ineffective [None]
  - Pyrexia [None]
  - Pain [None]
  - Drug dose omission [None]
  - Dehydration [None]
  - Blood pressure increased [None]
  - Condition aggravated [None]
  - Haematochezia [None]
  - Wheezing [None]
  - Tracheal disorder [None]
  - Faeces discoloured [None]
  - Insomnia [None]
  - Abasia [None]
  - Malaise [None]
  - Vomiting [None]
  - Headache [None]
  - Epigastric discomfort [None]
  - Blood urine present [None]
  - Spinal disorder [None]
  - Nausea [None]
  - Dizziness [None]
  - Electrolyte imbalance [None]
  - Mobility decreased [None]

NARRATIVE: CASE EVENT DATE: 20150210
